FAERS Safety Report 12328532 (Version 1)
Quarter: 2016Q2

REPORT INFORMATION
  Report Type: Spontaneous
  Country: US (occurrence: US)
  Receive Date: 20160503
  Receipt Date: 20160503
  Transmission Date: 20160815
  Serious: No
  Sender: FDA-Public Use
  Company Number: US-BEH-2015049019

PATIENT
  Age: 54 Year
  Sex: Female
  Weight: 114 kg

DRUGS (25)
  1. NASACORT [Concomitant]
     Active Substance: TRIAMCINOLONE ACETONIDE
  2. ADVAIR DISKUS [Concomitant]
     Active Substance: FLUTICASONE PROPIONATE\SALMETEROL XINAFOATE
  3. POTASSIUM [Concomitant]
     Active Substance: POTASSIUM
  4. DIPHENHYDRAMINE. [Concomitant]
     Active Substance: DIPHENHYDRAMINE
  5. EPIPEN [Concomitant]
     Active Substance: EPINEPHRINE
  6. COQ10 [Concomitant]
     Active Substance: UBIDECARENONE
  7. MULTIVITAMIN [Concomitant]
     Active Substance: VITAMINS
  8. NEURONTIN [Concomitant]
     Active Substance: GABAPENTIN
  9. HIZENTRA [Suspect]
     Active Substance: HUMAN IMMUNOGLOBULIN G
     Indication: IMMUNODEFICIENCY
     Route: 058
     Dates: start: 20140401
  10. NIACIN. [Concomitant]
     Active Substance: NIACIN
  11. OSTEO BI-FLEX [Concomitant]
     Active Substance: CHONDROITIN SULFATE A\GLUCOSAMINE
  12. POTASSIUM GLUC [Concomitant]
  13. ACYCLOVIR. [Concomitant]
     Active Substance: ACYCLOVIR
  14. XOPENEX [Concomitant]
     Active Substance: LEVALBUTEROL HYDROCHLORIDE
  15. LORTAB [Concomitant]
     Active Substance: ACETAMINOPHEN\HYDROCODONE BITARTRATE
  16. BETAMETHASONE DP [Concomitant]
  17. GINGER. [Concomitant]
     Active Substance: GINGER
  18. VITAMIN B COMPLEX [Concomitant]
     Active Substance: CYANOCOBALAMIN\DEXPANTHENOL\NIACINAMIDE\PYRIDOXINE HYDROCHLORIDE\RIBOFLAVIN 5^-PHOSPHATE SODIUM\THIAMINE HYDROCHLORIDE\VITAMIN B COMPLEX
  19. SINGULAIR [Concomitant]
     Active Substance: MONTELUKAST SODIUM
  20. GINSENG [Concomitant]
     Active Substance: ASIAN GINSENG
  21. VITAMIN E [Concomitant]
     Active Substance: .ALPHA.-TOCOPHEROL
  22. SOMA [Concomitant]
     Active Substance: CARISOPRODOL
  23. VITAMIN D [Concomitant]
     Active Substance: CHOLECALCIFEROL
  24. ZYRTEC [Concomitant]
     Active Substance: CETIRIZINE HYDROCHLORIDE
  25. NORCO [Concomitant]
     Active Substance: ACETAMINOPHEN\HYDROCODONE BITARTRATE

REACTIONS (1)
  - Diarrhoea [Recovered/Resolved]

NARRATIVE: CASE EVENT DATE: 20150213
